FAERS Safety Report 10161801 (Version 4)
Quarter: 2014Q2

REPORT INFORMATION
  Report Type: Report from Study
  Country: CA (occurrence: CA)
  Receive Date: 20140509
  Receipt Date: 20140516
  Transmission Date: 20141212
  Serious: Yes (Other)
  Sender: FDA-Public Use
  Company Number: CA-ROCHE-1360173

PATIENT
  Sex: Female
  Weight: 65.8 kg

DRUGS (7)
  1. RITUXAN [Suspect]
     Indication: PEMPHIGUS
     Dosage: FREQUENCY: DAY 1,15
     Route: 042
     Dates: start: 20140219
  2. PREDNISONE [Suspect]
     Indication: PRODUCT USED FOR UNKNOWN INDICATION
     Route: 065
  3. ACETAMINOPHEN [Concomitant]
     Route: 048
     Dates: start: 20140219
  4. METHYLPREDNISOLONE [Concomitant]
     Route: 042
     Dates: start: 20140219
  5. IMURAN [Concomitant]
  6. TYLENOL [Concomitant]
  7. ACTONEL [Concomitant]

REACTIONS (4)
  - Off label use [Unknown]
  - Drug ineffective [Unknown]
  - Peripheral swelling [Unknown]
  - Pemphigus [Not Recovered/Not Resolved]
